FAERS Safety Report 6763448-6 (Version None)
Quarter: 2010Q2

REPORT INFORMATION
  Report Type: 
  Country: None (occurrence: None)
  Receive Date: 20100610
  Receipt Date: 20100527
  Transmission Date: 20101027
  Serious: Yes (Hospitalization, Other)
  Sender: FDA-Public Use
  Company Number: US-ELI_LILLY_AND_COMPANY-US201006001388

PATIENT
  Sex: Female

DRUGS (20)
  1. FORTEO [Suspect]
     Indication: OSTEOPOROSIS
     Dosage: 20 UG, DAILY (1/D)
     Dates: start: 20091101
  2. METFORMIN [Concomitant]
     Dosage: 500 MG, 2/D
  3. NORTRIPTYLINE HCL [Concomitant]
     Dosage: 25 MG, DAILY (1/D)
  4. LEVOTHYROXINE SODIUM [Concomitant]
     Dosage: 150 MG, DAILY (1/D)
  5. ACTOS [Concomitant]
     Dosage: 45 MG, DAILY (1/D)
  6. ADVAIR DISKUS 100/50 [Concomitant]
     Dosage: UNK D/F, 2/D
  7. VENTOLIN HFA [Concomitant]
     Route: 055
  8. SPIRIVA [Concomitant]
     Dosage: 18 MG, DAILY (1/D)
  9. CLONIDINE [Concomitant]
     Dosage: 0.1 MG, 2/D
  10. VYTORIN [Concomitant]
     Dosage: UNK D/F, DAILY (1/D)
  11. COZAAR [Concomitant]
     Dosage: 100 MG, DAILY (1/D)
  12. ISOSORBIDE [Concomitant]
     Dosage: 60 MG, DAILY (1/D)
  13. DILTIAZEM HCL [Concomitant]
     Dosage: 240 MG, DAILY (1/D)
  14. OXYTROL [Concomitant]
     Dosage: 3.9 MG, 2/W
     Route: 062
  15. VERAMYST [Concomitant]
     Dosage: 27.5 UG, DAILY (1/D)
     Route: 045
  16. SINGULAIR [Concomitant]
     Dosage: 10 MG, UNKNOWN
  17. NITROSTAT [Concomitant]
     Dosage: 0.4 MG, AS NEEDED
  18. ASPIRIN [Concomitant]
     Dosage: 81 MG, DAILY (1/D)
  19. VITAMIN D [Concomitant]
     Dosage: 1000 U, 2/D
  20. IRON [Concomitant]
     Dosage: 28 MG, DAILY (1/D)

REACTIONS (4)
  - ASTHMA [None]
  - CARDIAC STRESS TEST ABNORMAL [None]
  - CATHETERISATION CARDIAC [None]
  - DYSPNOEA [None]
